FAERS Safety Report 15203880 (Version 1)
Quarter: 2018Q3

REPORT INFORMATION
  Report Type: Spontaneous
  Country: US (occurrence: US)
  Receive Date: 20180628
  Receipt Date: 20180628
  Transmission Date: 20181010
  Serious: No
  Sender: FDA-Public Use
  Company Number: None

PATIENT
  Age: 52 Year
  Sex: Female
  Weight: 62.55 kg

DRUGS (6)
  1. SEASONAL ALLERGY PRODUCTS [Concomitant]
  2. LEVOXYL [Concomitant]
     Active Substance: LEVOTHYROXINE SODIUM
  3. NATURE MADE CALCIUM MAGNESIUM ZINC, WITH VITAMIN D [Concomitant]
  4. LIOTHYRONINE 25MCG TAB [Suspect]
     Active Substance: LIOTHYRONINE
     Indication: PRODUCT USED FOR UNKNOWN INDICATION
     Dosage: ?          OTHER STRENGTH:MCG;QUANTITY:1 TABLET(S);?
     Dates: start: 20180327, end: 20180328
  5. MIMVEY [Concomitant]
     Active Substance: ESTRADIOL\NORETHINDRONE ACETATE
  6. CLARITIN [Concomitant]
     Active Substance: LORATADINE

REACTIONS (4)
  - Neck pain [None]
  - Therapy change [None]
  - Arthralgia [None]
  - Pain in extremity [None]

NARRATIVE: CASE EVENT DATE: 20180328
